FAERS Safety Report 16393506 (Version 1)
Quarter: 2019Q2

REPORT INFORMATION
  Report Type: Report from Study
  Country: GB (occurrence: GB)
  Receive Date: 20190605
  Receipt Date: 20190605
  Transmission Date: 20190711
  Serious: Yes (Other)
  Sender: FDA-Public Use
  Company Number: GB-TEVA-2019-GB-1060294

PATIENT
  Sex: Female

DRUGS (1)
  1. COPAXONE [Suspect]
     Active Substance: GLATIRAMER ACETATE
     Indication: MULTIPLE SCLEROSIS
     Route: 058
     Dates: start: 20180314

REACTIONS (6)
  - Chest discomfort [Unknown]
  - Patient dissatisfaction with treatment [Unknown]
  - Product dose omission [Unknown]
  - Dyspnoea [Unknown]
  - Chest pain [Unknown]
  - General symptom [Unknown]
